FAERS Safety Report 9383407 (Version 2)
Quarter: 2014Q2

REPORT INFORMATION
  Report Type: Spontaneous
  Country: CA (occurrence: CA)
  Receive Date: 20130704
  Receipt Date: 20140512
  Transmission Date: 20141212
  Serious: Yes (Other)
  Sender: FDA-Public Use
  Company Number: CA-ROCHE-1244254

PATIENT
  Age: 13 Year
  Sex: Male

DRUGS (5)
  1. XOLAIR [Suspect]
     Indication: ASTHMA
     Route: 058
     Dates: start: 20130530
  2. XOLAIR [Suspect]
     Route: 058
     Dates: start: 20130627
  3. XOLAIR [Suspect]
     Route: 058
     Dates: start: 20140403
  4. ZENHALE [Concomitant]
  5. VENTOLIN [Concomitant]

REACTIONS (2)
  - Blood pressure decreased [Unknown]
  - Weight increased [Unknown]
